FAERS Safety Report 18481797 (Version 3)
Quarter: 2023Q2

REPORT INFORMATION
  Report Type: Spontaneous
  Country: US (occurrence: US)
  Receive Date: 20201109
  Receipt Date: 20230412
  Transmission Date: 20230721
  Serious: No
  Sender: FDA-Public Use
  Company Number: US-PFIZER INC-2020431662

PATIENT
  Age: 74 Year
  Sex: Female

DRUGS (1)
  1. IBRANCE [Suspect]
     Active Substance: PALBOCICLIB
     Dosage: 75 MG
     Dates: start: 20180820

REACTIONS (5)
  - Product dose omission issue [Unknown]
  - Balance disorder [Unknown]
  - Fatigue [Unknown]
  - Dizziness [Unknown]
  - Alopecia [Unknown]
